FAERS Safety Report 5254754-5 (Version None)
Quarter: 2007Q1

REPORT INFORMATION
  Report Type: 
  Country: None (occurrence: None)
  Receive Date: 20070228
  Receipt Date: 20070213
  Transmission Date: 20070707
  Serious: Yes (Disabling)
  Sender: FDA-Public Use
  Company Number: 0104-2958

PATIENT
  Age: 63 Year
  Sex: Female
  Weight: 79.3795 kg

DRUGS (2)
  1. ADVICOR [Suspect]
     Indication: BLOOD CHOLESTEROL INCREASED
     Dosage: 1 TABLET (S) QHS PO
     Route: 048
     Dates: start: 20060818, end: 20060929
  2. ACTONEL /USA/ [Concomitant]

REACTIONS (8)
  - ANKLE FRACTURE [None]
  - BLOOD PRESSURE DECREASED [None]
  - FALL [None]
  - FEELING HOT [None]
  - FLUSHING [None]
  - HEAD INJURY [None]
  - HEPATIC ENZYME INCREASED [None]
  - LOSS OF CONSCIOUSNESS [None]
